FAERS Safety Report 26026245 (Version 4)
Quarter: 2025Q4

REPORT INFORMATION
  Report Type: Spontaneous
  Country: US (occurrence: US)
  Receive Date: 20251111
  Receipt Date: 20251223
  Transmission Date: 20260117
  Serious: Yes (Hospitalization, Other)
  Sender: BRISTOL-MYERS SQUIBB COMPANY
  Company Number: US-BRISTOL-MYERS SQUIBB COMPANY-2025-148831

PATIENT
  Age: 80 Year
  Sex: Female

DRUGS (3)
  1. IDHIFA [Suspect]
     Active Substance: ENASIDENIB MESYLATE
     Indication: Myelodysplastic syndrome with excess blasts
     Route: 048
     Dates: start: 20251010, end: 20251116
  2. IDHIFA [Suspect]
     Active Substance: ENASIDENIB MESYLATE
     Route: 048
     Dates: start: 20251012
  3. VENCLEXTA [Suspect]
     Active Substance: VENETOCLAX
     Indication: Product used for unknown indication

REACTIONS (13)
  - Blood test abnormal [Unknown]
  - Platelet count decreased [Unknown]
  - Full blood count decreased [Unknown]
  - Thrombosis [Unknown]
  - Haemorrhage [Unknown]
  - Adjustment disorder with depressed mood [Unknown]
  - Off label use [Unknown]
  - Nasopharyngitis [Unknown]
  - Epistaxis [Unknown]
  - Oral blood blister [Unknown]
  - White blood cell count decreased [Unknown]
  - Insomnia [Unknown]
  - Pain in extremity [Unknown]

NARRATIVE: CASE EVENT DATE: 20251001
